FAERS Safety Report 18750848 (Version 1)
Quarter: 2021Q1

REPORT INFORMATION
  Report Type: Other
  Country: BR (occurrence: BR)
  Receive Date: 20210118
  Receipt Date: 20210118
  Transmission Date: 20210419
  Serious: Yes (Other)
  Sender: FDA-Public Use
  Company Number: BR-ROCHE-2721030

PATIENT
  Age: 19 Year
  Sex: Female
  Weight: 92 kg

DRUGS (2)
  1. MABTHERA [Suspect]
     Active Substance: RITUXIMAB
     Indication: RHEUMATOID ARTHRITIS
  2. MABTHERA [Suspect]
     Active Substance: RITUXIMAB
     Indication: SYSTEMIC LUPUS ERYTHEMATOSUS
     Route: 042
     Dates: start: 20200428

REACTIONS (9)
  - Lip oedema [Recovered/Resolved]
  - Rash [Recovered/Resolved]
  - Eye oedema [Recovered/Resolved]
  - Dyspnoea [Recovered/Resolved]
  - Off label use [Unknown]
  - Intentional product use issue [Unknown]
  - Flushing [Recovered/Resolved]
  - Oedema mouth [Recovered/Resolved]
  - Cough [Recovered/Resolved]

NARRATIVE: CASE EVENT DATE: 20201123
